FAERS Safety Report 7268210-6 (Version None)
Quarter: 2011Q1

REPORT INFORMATION
  Report Type: 
  Country: None (occurrence: None)
  Receive Date: 20110201
  Receipt Date: 20110124
  Transmission Date: 20110831
  Serious: Yes (Other)
  Sender: FDA-Public Use
  Company Number: PHHY2011VE05852

PATIENT
  Sex: Female

DRUGS (2)
  1. FORADIL [Suspect]
  2. MIFLONIDE [Suspect]

REACTIONS (4)
  - SPINAL OSTEOARTHRITIS [None]
  - BACK PAIN [None]
  - OXYGEN CONSUMPTION DECREASED [None]
  - DIZZINESS [None]
